FAERS Safety Report 4866826-5 (Version None)
Quarter: 2005Q4

REPORT INFORMATION
  Report Type: 
  Country: None (occurrence: None)
  Receive Date: 20051222
  Receipt Date: 20051209
  Transmission Date: 20060501
  Serious: Yes (Disabling)
  Sender: FDA-Public Use
  Company Number: S05-NLD-05699-01

PATIENT
  Age: 22 Year
  Sex: Male

DRUGS (2)
  1. LEXAPRO [Suspect]
     Indication: PANIC DISORDER
     Dosage: 10 MG QD PO
     Route: 048
     Dates: start: 20051024
  2. OXAZEPAM [Concomitant]

REACTIONS (2)
  - ACCOMMODATION DISORDER [None]
  - MYDRIASIS [None]
